FAERS Safety Report 5134554-7 (Version None)
Quarter: 2006Q4

REPORT INFORMATION
  Report Type: 
  Country: None (occurrence: None)
  Receive Date: 20061019
  Receipt Date: 20061010
  Transmission Date: 20070319
  Serious: Yes (Hospitalization, Other)
  Sender: FDA-Public Use
  Company Number: 163-20785-06080270

PATIENT
  Age: 70 Year
  Sex: Female

DRUGS (1)
  1. THALOMID [Suspect]
     Indication: MULTIPLE MYELOMA
     Dosage: 200 MG, DAILY, ORAL
     Route: 048
     Dates: start: 20060403, end: 20060630

REACTIONS (3)
  - DISEASE PROGRESSION [None]
  - RENAL DISORDER [None]
  - RENAL FAILURE ACUTE [None]
